FAERS Safety Report 16342297 (Version 2)
Quarter: 2019Q3

REPORT INFORMATION
  Report Type: Report from Study
  Country: US (occurrence: US)
  Receive Date: 20190522
  Receipt Date: 20190813
  Transmission Date: 20191004
  Serious: Yes (Death, Life-Threatening, Hospitalization, Other)
  Sender: FDA-Public Use
  Company Number: US-BRISTOL-MYERS SQUIBB COMPANY-BMS-2019-049477

PATIENT
  Age: 59 Year
  Sex: Male
  Weight: 129 kg

DRUGS (1)
  1. IPILIMUMAB [Suspect]
     Active Substance: IPILIMUMAB
     Indication: MALIGNANT MELANOMA
     Dosage: 1293 MILLIGRAM
     Route: 065
     Dates: start: 20140131, end: 20140404

REACTIONS (4)
  - Acute kidney injury [Recovering/Resolving]
  - Nausea [Unknown]
  - Death [Fatal]
  - Myocardial infarction [Recovering/Resolving]

NARRATIVE: CASE EVENT DATE: 20140404
